FAERS Safety Report 25093156 (Version 4)
Quarter: 2025Q3

REPORT INFORMATION
  Report Type: Spontaneous
  Country: US (occurrence: US)
  Receive Date: 20250319
  Receipt Date: 20250714
  Transmission Date: 20251021
  Serious: Yes (Hospitalization, Other)
  Sender: ALEXION PHARMACEUTICALS
  Company Number: US-AstraZeneca-CH-00830449A

PATIENT
  Age: 91 Year
  Sex: Female

DRUGS (1)
  1. FARXIGA [Suspect]
     Active Substance: DAPAGLIFLOZIN PROPANEDIOL
     Indication: Type 2 diabetes mellitus
     Dosage: 5 MILLIGRAM, QD
     Route: 065
     Dates: start: 2023, end: 2025

REACTIONS (7)
  - Vulval abscess [Unknown]
  - Blood glucose decreased [Unknown]
  - Bacterial infection [Unknown]
  - Pain [Unknown]
  - Anxiety [Unknown]
  - Gait disturbance [Unknown]
  - Illness [Unknown]
